FAERS Safety Report 9646547 (Version 2)
Quarter: 2013Q4

REPORT INFORMATION
  Report Type: Spontaneous
  Country: US (occurrence: US)
  Receive Date: 20131025
  Receipt Date: 20131025
  Transmission Date: 20140711
  Serious: Yes (Death)
  Sender: FDA-Public Use
  Company Number: US-TMC-CABO-13003196

PATIENT
  Age: 66 Year
  Sex: Female
  Weight: 121.54 kg

DRUGS (10)
  1. COMETRIQ [Suspect]
     Indication: THYROID CANCER
     Dosage: 140 MG, QD
     Route: 048
     Dates: start: 20130612, end: 20130810
  2. COMETRIQ [Suspect]
     Indication: METASTASES TO LIVER
  3. METFORMIN [Concomitant]
  4. SIMVASTATIN [Concomitant]
  5. SYNTHROID [Concomitant]
  6. HYDROCODONE [Concomitant]
  7. OMEPRAZOLE [Concomitant]
  8. LISINOPRIL [Concomitant]
  9. ZOFRAN [Concomitant]
  10. LOPERAMIDE [Concomitant]

REACTIONS (1)
  - Sudden cardiac death [Fatal]
